FAERS Safety Report 8243520-4 (Version None)
Quarter: 2012Q1

REPORT INFORMATION
  Report Type: 
  Country: None (occurrence: None)
  Receive Date: 20120329
  Receipt Date: 20120322
  Transmission Date: 20120608
  Serious: Yes (Death, Hospitalization)
  Sender: FDA-Public Use
  Company Number: PHHY2012IL026409

PATIENT
  Age: 65 Year
  Sex: Male

DRUGS (1)
  1. LAMISIL [Suspect]
     Indication: FUNGAL INFECTION
     Dosage: 250 MG, UNK
     Route: 048

REACTIONS (14)
  - HEPATITIS CHOLESTATIC [None]
  - FEELING ABNORMAL [None]
  - ACUTE HEPATIC FAILURE [None]
  - RENAL FAILURE [None]
  - FATIGUE [None]
  - CREATININE RENAL CLEARANCE DECREASED [None]
  - OEDEMA DUE TO HEPATIC DISEASE [None]
  - MALAISE [None]
  - BLOOD CREATININE INCREASED [None]
  - NEUTROPENIA [None]
  - LEUKOPENIA [None]
  - INFECTION [None]
  - MULTI-ORGAN FAILURE [None]
  - CARDIAC DISORDER [None]
